FAERS Safety Report 9148707 (Version 1)
Quarter: 2013Q1

REPORT INFORMATION
  Report Type: Spontaneous
  Country: US (occurrence: US)
  Receive Date: 20130308
  Receipt Date: 20130308
  Transmission Date: 20140127
  Serious: No
  Sender: FDA-Public Use
  Company Number: US-ENDO PHARMACEUTICALS INC.-OPCR20122075

PATIENT
  Sex: Female

DRUGS (2)
  1. OPANA ER [Suspect]
     Indication: FIBROMYALGIA
     Route: 048
     Dates: start: 20121018, end: 20121127
  2. OPANA ER [Suspect]
     Indication: PAIN

REACTIONS (1)
  - Feeling abnormal [Not Recovered/Not Resolved]
